FAERS Safety Report 14543710 (Version 1)
Quarter: 2018Q1

REPORT INFORMATION
  Report Type: Spontaneous
  Country: JP (occurrence: JP)
  Receive Date: 20180216
  Receipt Date: 20180216
  Transmission Date: 20180509
  Serious: Yes (Hospitalization)
  Sender: FDA-Public Use
  Company Number: JP-GE HEALTHCARE LIFE SCIENCES-2018CSU000721

PATIENT

DRUGS (23)
  1. SEVELAMER HYDROCHLORIDE [Concomitant]
     Active Substance: SEVELAMER HYDROCHLORIDE
  2. BETAHISTINE MESILATE [Concomitant]
     Active Substance: BETAHISTINE MESILATE
  3. AMLODIPINE BESILATE [Concomitant]
     Active Substance: AMLODIPINE BESYLATE
  4. VISIPAQUE [Suspect]
     Active Substance: IODIXANOL
     Indication: ANGINA PECTORIS
     Dosage: 13 ML, SINGLE
     Route: 013
  5. LOXOPROFEN SODIUM HYDRATE [Concomitant]
     Active Substance: LOXOPROFEN SODIUM DIHYDRATE
  6. HYDROCORTISONE. [Concomitant]
     Active Substance: HYDROCORTISONE
     Dosage: 200 MG, SINGLE
     Route: 065
  7. ETHYL ICOSAPENTATE [Concomitant]
     Active Substance: ICOSAPENT ETHYL
  8. CALCIUM CARBONATE. [Concomitant]
     Active Substance: CALCIUM CARBONATE
  9. EFIENT [Concomitant]
     Active Substance: PRASUGREL HYDROCHLORIDE
  10. LINAGLIPTIN [Concomitant]
     Active Substance: LINAGLIPTIN
  11. ASPIRIN                            /00002701/ [Concomitant]
     Active Substance: ASPIRIN
  12. EPALRESTAT [Concomitant]
     Active Substance: EPALRESTAT
  13. LANSOPRAZOLE. [Concomitant]
     Active Substance: LANSOPRAZOLE
  14. MECOBALAMIN [Concomitant]
     Active Substance: METHYLCOBALAMIN
  15. BERAPROST SODIUM [Concomitant]
     Active Substance: BERAPROST SODIUM
  16. FLURBIPROFEN. [Concomitant]
     Active Substance: FLURBIPROFEN
  17. LOXONIN [Concomitant]
     Active Substance: LOXOPROFEN SODIUM
  18. TEPRENONE [Concomitant]
     Active Substance: TEPRENONE
  19. ALFACALCIDOL [Concomitant]
     Active Substance: ALFACALCIDOL
  20. IRBESARTAN. [Concomitant]
     Active Substance: IRBESARTAN
  21. IOPAMIRON [Suspect]
     Active Substance: IOPAMIDOL
     Indication: ANGINA PECTORIS
     Dosage: 30 ML, SINGLE
     Route: 065
  22. VOGLIBOSE [Concomitant]
     Active Substance: VOGLIBOSE
  23. FEXOFENADINE HYDROCHLORIDE. [Concomitant]
     Active Substance: FEXOFENADINE HYDROCHLORIDE

REACTIONS (1)
  - Fixed eruption [Recovering/Resolving]

NARRATIVE: CASE EVENT DATE: 20180206
